FAERS Safety Report 20857925 (Version 3)
Quarter: 2022Q2

REPORT INFORMATION
  Report Type: Spontaneous
  Country: ES (occurrence: ES)
  Receive Date: 20220521
  Receipt Date: 20220604
  Transmission Date: 20220720
  Serious: Yes (Death, Other)
  Sender: FDA-Public Use
  Company Number: US-AMGEN-USASP2022087396

PATIENT

DRUGS (2)
  1. APREMILAST [Suspect]
     Active Substance: APREMILAST
     Indication: Psoriasis
     Dosage: UNK
     Route: 065
  2. APREMILAST [Suspect]
     Active Substance: APREMILAST
     Indication: Psoriatic arthropathy

REACTIONS (12)
  - Oesophageal carcinoma [Fatal]
  - Tongue neoplasm malignant stage unspecified [Fatal]
  - Dermatomyositis [Unknown]
  - Lymphoma [Unknown]
  - Adenocarcinoma pancreas [Unknown]
  - Adverse drug reaction [Unknown]
  - Treatment failure [Unknown]
  - Drug ineffective [Unknown]
  - Adverse event [Unknown]
  - Off label use [Unknown]
  - Unevaluable event [Unknown]
  - Arthralgia [Unknown]
